FAERS Safety Report 7070018-1 (Version None)
Quarter: 2010Q4

REPORT INFORMATION
  Report Type: 
  Country: None (occurrence: None)
  Receive Date: 20101028
  Receipt Date: 20100910
  Transmission Date: 20110411
  Serious: No
  Sender: FDA-Public Use
  Company Number: US-WYE-H17040210

PATIENT
  Age: 64 Year
  Sex: Female
  Weight: 50.85 kg

DRUGS (3)
  1. ADVIL [Suspect]
     Indication: VULVOVAGINAL PAIN
     Dosage: TWO EVERY SIX HOURS FOR A TOTAL OF EIGHT WAS RECOMMENDED BY HER PHYSICIAN
     Route: 048
     Dates: start: 20100814
  2. ADVIL [Suspect]
     Indication: INFLAMMATION
  3. CLONAZEPAM [Concomitant]

REACTIONS (2)
  - ABDOMINAL DISCOMFORT [None]
  - DRUG INEFFECTIVE [None]
